FAERS Safety Report 19494042 (Version 7)
Quarter: 2021Q4

REPORT INFORMATION
  Report Type: Report from Study
  Country: US (occurrence: US)
  Receive Date: 20210705
  Receipt Date: 20211113
  Transmission Date: 20220303
  Serious: Yes (Hospitalization)
  Sender: FDA-Public Use
  Company Number: US-ABBVIE-21K-163-3977832-00

PATIENT
  Age: 62 Year
  Sex: Male
  Weight: 88.9 kg

DRUGS (1)
  1. IMBRUVICA [Suspect]
     Active Substance: IBRUTINIB
     Indication: Chronic lymphocytic leukaemia
     Route: 048
     Dates: start: 20190306, end: 20191121

REACTIONS (4)
  - Acute coronary syndrome [Recovering/Resolving]
  - Troponin I increased [Recovered/Resolved]
  - Myocardial infarction [Recovering/Resolving]
  - Coronary artery disease [Not Recovered/Not Resolved]

NARRATIVE: CASE EVENT DATE: 20191210
